FAERS Safety Report 24359816 (Version 1)
Quarter: 2024Q3

REPORT INFORMATION
  Report Type: Report from Study
  Country: CA (occurrence: CA)
  Receive Date: 20240924
  Receipt Date: 20240924
  Transmission Date: 20241016
  Serious: Yes (Other)
  Sender: ABBVIE
  Company Number: CA-ABBVIE-5930671

PATIENT
  Age: 70 Year
  Sex: Male

DRUGS (1)
  1. LUPRON [Suspect]
     Active Substance: LEUPROLIDE ACETATE
     Indication: Prostate cancer
     Dosage: FORM STRENGTH: 22.5, FORM STRENGTH UNITS: MILLIGRAM
     Route: 030
     Dates: start: 20230328

REACTIONS (1)
  - Urinary incontinence [Recovering/Resolving]
